FAERS Safety Report 9294076 (Version 1)
Quarter: 2013Q1

REPORT INFORMATION
  Report Type: Spontaneous
  Country: US (occurrence: None)
  Receive Date: 20121218
  Receipt Date: 20121218
  Transmission Date: 20140127
  Serious: Yes (Disabling, Other)
  Sender: FDA-Public Use
  Company Number: PHEH2012US016909

PATIENT
  Age: 86 Year
  Sex: Female
  Weight: 76.02 kg

DRUGS (2)
  1. ZOMETA [Suspect]
     Indication: OSTEOPOROSIS
     Route: 042
     Dates: start: 20120606
  2. ZOMETA [Suspect]
     Route: 042
     Dates: start: 20120606

REACTIONS (4)
  - Anxiety [None]
  - Blood pressure systolic increased [None]
  - Oedema peripheral [None]
  - Arthralgia [None]
